FAERS Safety Report 13321004 (Version 1)
Quarter: 2017Q1

REPORT INFORMATION
  Report Type: Spontaneous
  Country: US (occurrence: US)
  Receive Date: 20170309
  Receipt Date: 20170309
  Transmission Date: 20170428
  Serious: Yes (Other)
  Sender: FDA-Public Use
  Company Number: US-009507513-1703USA003427

PATIENT
  Sex: Female

DRUGS (1)
  1. ZOCOR [Suspect]
     Active Substance: SIMVASTATIN
     Dosage: 80 MG, UNK
     Route: 048

REACTIONS (3)
  - Inclusion body myositis [Unknown]
  - Incorrect dose administered [Unknown]
  - Drug dose titration not performed [Unknown]
